FAERS Safety Report 25923942 (Version 1)
Quarter: 2025Q4

REPORT INFORMATION
  Report Type: Spontaneous
  Country: US (occurrence: US)
  Receive Date: 20251015
  Receipt Date: 20251015
  Transmission Date: 20260118
  Serious: Yes (Other)
  Sender: MYLAN
  Company Number: US-MYLANLABS-2025M1087424

PATIENT
  Age: 67 Year
  Sex: Female

DRUGS (6)
  1. GABAPENTIN [Suspect]
     Active Substance: GABAPENTIN
     Indication: Migraine
     Dosage: UNK
  2. GABAPENTIN [Suspect]
     Active Substance: GABAPENTIN
     Indication: Red ear syndrome
  3. AMITRIPTYLINE [Suspect]
     Active Substance: AMITRIPTYLINE
     Indication: Migraine
     Dosage: UNK
  4. AMITRIPTYLINE [Suspect]
     Active Substance: AMITRIPTYLINE
     Indication: Red ear syndrome
  5. CANNABIDIOL [Suspect]
     Active Substance: CANNABIDIOL
     Indication: Migraine
     Dosage: UNK
  6. CANNABIDIOL [Suspect]
     Active Substance: CANNABIDIOL
     Indication: Red ear syndrome

REACTIONS (2)
  - Treatment failure [Unknown]
  - Off label use [Unknown]
